FAERS Safety Report 5229315-4 (Version None)
Quarter: 2007Q1

REPORT INFORMATION
  Report Type: 
  Country: None (occurrence: None)
  Receive Date: 20070205
  Receipt Date: 20070131
  Transmission Date: 20070707
  Serious: Yes (Hospitalization)
  Sender: FDA-Public Use
  Company Number: US-MERCK-0603USA04150

PATIENT
  Age: 54 Year
  Sex: Female

DRUGS (3)
  1. FOSAMAX [Suspect]
     Indication: OSTEOPENIA
     Route: 048
     Dates: start: 20060101, end: 20070124
  2. FOSAMAX [Suspect]
     Route: 048
     Dates: start: 20060101, end: 20070124
  3. NEURONTIN [Concomitant]
     Route: 065

REACTIONS (6)
  - ABDOMINAL DISTENSION [None]
  - ANOREXIA [None]
  - CONSTIPATION [None]
  - FLATULENCE [None]
  - WEIGHT DECREASED [None]
  - WRONG TECHNIQUE IN DRUG USAGE PROCESS [None]
